FAERS Safety Report 6145804-2 (Version None)
Quarter: 2009Q2

REPORT INFORMATION
  Report Type: 
  Country: None (occurrence: None)
  Receive Date: 20090403
  Receipt Date: 20090318
  Transmission Date: 20091009
  Serious: Yes (Life-Threatening)
  Sender: FDA-Public Use
  Company Number: 8044344

PATIENT

DRUGS (1)
  1. KEPPRA [Suspect]
     Dosage: 1000 MG 2/D PO
     Route: 048

REACTIONS (1)
  - LEUKOPENIA [None]
